FAERS Safety Report 4426388-3 (Version None)
Quarter: 2004Q3

REPORT INFORMATION
  Report Type: 
  Country: None (occurrence: None)
  Receive Date: 20040811
  Receipt Date: 20040726
  Transmission Date: 20050211
  Serious: Yes (Hospitalization)
  Sender: FDA-Public Use
  Company Number: B0340675A

PATIENT
  Age: 51 Year
  Sex: Male

DRUGS (2)
  1. CUTIVATE [Suspect]
     Indication: ECZEMA
     Dosage: TOPICAL
     Route: 061
     Dates: start: 20040722, end: 20040726
  2. CADE OIL (FORMULATION UNKNOWN) (CADE OIL) [Suspect]
     Indication: ECZEMA
     Dosage: TOPICAL
     Route: 061
     Dates: start: 20040722, end: 20040726

REACTIONS (3)
  - BURNING SENSATION [None]
  - DERMATITIS BULLOUS [None]
  - OEDEMA PERIPHERAL [None]
